FAERS Safety Report 4303126-6 (Version None)
Quarter: 2004Q1

REPORT INFORMATION
  Report Type: 
  Country: None (occurrence: None)
  Receive Date: 20040224
  Receipt Date: 20040217
  Transmission Date: 20041129
  Serious: Yes (Hospitalization)
  Sender: FDA-Public Use
  Company Number: MX-ROCHE-359087

PATIENT
  Age: 75 Year
  Sex: Female
  Weight: 35.5 kg

DRUGS (1)
  1. NAPROXEN SODIUM [Suspect]
     Indication: DRUG USE FOR UNKNOWN INDICATION
     Route: 065

REACTIONS (16)
  - ABDOMINAL PAIN [None]
  - ASCITES [None]
  - ASTHENIA [None]
  - COLONIC STENOSIS [None]
  - DECREASED APPETITE [None]
  - DIARRHOEA [None]
  - DIVERTICULUM [None]
  - ERYTHEMA [None]
  - GASTRIC DISORDER [None]
  - HYPOTENSION [None]
  - INFLAMMATION LOCALISED [None]
  - OEDEMA PERIPHERAL [None]
  - PHYSICAL EXAMINATION ABNORMAL [None]
  - STEATORRHOEA [None]
  - TACHYCARDIA [None]
  - WEIGHT DECREASED [None]
